FAERS Safety Report 11287080 (Version 1)
Quarter: 2015Q3

REPORT INFORMATION
  Report Type: Spontaneous
  Country: US (occurrence: US)
  Receive Date: 20150721
  Receipt Date: 20150721
  Transmission Date: 20151125
  Serious: Yes (Hospitalization)
  Sender: FDA-Public Use
  Company Number: US-UNITED THERAPEUTICS-UNT-2014-011825

PATIENT
  Sex: Female
  Weight: 104.31 kg

DRUGS (1)
  1. REMODULIN [Suspect]
     Active Substance: TREPROSTINIL
     Indication: PULMONARY ARTERIAL HYPERTENSION
     Dosage: 0.046 ?G/KG, CONTINUING
     Route: 058
     Dates: start: 20130522

REACTIONS (4)
  - Dizziness [Unknown]
  - Constipation [Unknown]
  - Infusion site pain [Unknown]
  - Flushing [Unknown]

NARRATIVE: CASE EVENT DATE: 2014
